FAERS Safety Report 19697850 (Version 2)
Quarter: 2021Q3

REPORT INFORMATION
  Report Type: Spontaneous
  Country: PL (occurrence: PL)
  Receive Date: 20210813
  Receipt Date: 20210824
  Transmission Date: 20211014
  Serious: Yes (Death, Other)
  Sender: FDA-Public Use
  Company Number: PL-AMGEN-POLSP2021123728

PATIENT
  Age: 63 Year
  Sex: Female

DRUGS (9)
  1. 5?FLUOROURACIL [FLUOROURACIL] [Suspect]
     Active Substance: FLUOROURACIL
     Indication: ADENOCARCINOMA OF COLON
     Dosage: 400 MILLIGRAM/SQ. METER, Q2WK (DAY 1?2)
     Route: 040
     Dates: start: 20210520
  2. PRINIVIL [Concomitant]
     Active Substance: LISINOPRIL
     Indication: HYPERTENSION
     Dosage: 20 MILLIGRAM, AS NECESSARY
  3. VECTIBIX [Suspect]
     Active Substance: PANITUMUMAB
     Indication: ADENOCARCINOMA OF COLON
     Dosage: 6 MILLIGRAM/KILOGRAM, Q2WK (1?HOUR INFUSION)
     Route: 042
     Dates: start: 20210520
  4. PELGRAZ [Concomitant]
     Active Substance: PEGFILGRASTIM
     Indication: PROPHYLAXIS
     Dosage: UNK
     Route: 065
     Dates: start: 2021
  5. LEVOFOLIC [Suspect]
     Active Substance: LEUCOVORIN
     Indication: ADENOCARCINOMA OF COLON
     Dosage: 100 MILLIGRAM/SQ. METER, Q2WK (2?HOUR INFUSION DAY 1?2)
     Route: 042
     Dates: start: 20210520
  6. MILUKANTE [Concomitant]
     Dosage: 10 MILLIGRAM (IN THE EVENING)
  7. IRINOTECAN [Suspect]
     Active Substance: IRINOTECAN
     Indication: ADENOCARCINOMA OF COLON
     Dosage: 180 MILLIGRAM/SQ. METER, Q2WK (1.5?HOUR INFUSION)
     Route: 042
     Dates: start: 20210520
  8. 5?FLUOROURACIL [FLUOROURACIL] [Suspect]
     Active Substance: FLUOROURACIL
     Dosage: 600 MILLIGRAM/SQ. METER, Q2WK (22?HOUR INFUSION, DAY 1?2)
     Route: 041
     Dates: start: 20210520
  9. FLONIDAN [Concomitant]
     Active Substance: LORATADINE
     Dosage: 10 MILLIGRAM (IN THE MORNING)

REACTIONS (5)
  - Dermatitis acneiform [Unknown]
  - Nausea [Unknown]
  - Stomatitis [Unknown]
  - Sudden death [Fatal]
  - Hypomagnesaemia [Unknown]

NARRATIVE: CASE EVENT DATE: 2021
